FAERS Safety Report 15482355 (Version 1)
Quarter: 2018Q4

REPORT INFORMATION
  Report Type: Spontaneous
  Country: US (occurrence: US)
  Receive Date: 20181003
  Receipt Date: 20181003
  Transmission Date: 20190205
  Serious: Yes (Other)
  Sender: FDA-Public Use
  Company Number: None

PATIENT
  Age: 47 Year
  Sex: Female
  Weight: 58.5 kg

DRUGS (2)
  1. ROBITUSSIN SEVERE MULTI-SYMPTOM COUGH COLD FLU [Suspect]
     Active Substance: ACETAMINOPHEN\DEXTROMETHORPHAN HYDROBROMIDE\GUAIFENESIN\PHENYLEPHRINE HYDROCHLORIDE
     Indication: INFLUENZA
     Dosage: ?          OTHER STRENGTH:20 ML EVERY 4 HOUR;QUANTITY:4 ML;?
     Route: 048
     Dates: start: 20180929, end: 20181002
  2. ROBITUSSIN SEVERE MULTI-SYMPTOM COUGH COLD FLU [Suspect]
     Active Substance: ACETAMINOPHEN\DEXTROMETHORPHAN HYDROBROMIDE\GUAIFENESIN\PHENYLEPHRINE HYDROCHLORIDE
     Indication: NASOPHARYNGITIS
     Dosage: ?          OTHER STRENGTH:20 ML EVERY 4 HOUR;QUANTITY:4 ML;?
     Route: 048
     Dates: start: 20180929, end: 20181002

REACTIONS (1)
  - Toxicity to various agents [None]

NARRATIVE: CASE EVENT DATE: 20181002
